FAERS Safety Report 8184672-4 (Version None)
Quarter: 2012Q1

REPORT INFORMATION
  Report Type: 
  Country: None (occurrence: None)
  Receive Date: 20120305
  Receipt Date: 20120229
  Transmission Date: 20120608
  Serious: Yes (Other)
  Sender: FDA-Public Use
  Company Number: US-PFIZER INC-2012055688

PATIENT
  Sex: Female
  Weight: 57.143 kg

DRUGS (5)
  1. VALIUM [Suspect]
     Dosage: UNK
  2. CELEBREX [Suspect]
     Dosage: 100 MG, 2X/DAY
     Route: 048
  3. LYRICA [Suspect]
     Indication: NEUROPATHY PERIPHERAL
     Dosage: 25 MG, DAILY
     Route: 048
     Dates: start: 20120226
  4. LYRICA [Suspect]
     Indication: BACK INJURY
  5. MELATONIN [Concomitant]
     Dosage: UNK

REACTIONS (8)
  - ANXIETY [None]
  - THINKING ABNORMAL [None]
  - PAIN [None]
  - DRUG INEFFECTIVE [None]
  - INSOMNIA [None]
  - DIZZINESS [None]
  - MOVEMENT DISORDER [None]
  - NAUSEA [None]
